FAERS Safety Report 12312637 (Version 1)
Quarter: 2016Q2

REPORT INFORMATION
  Report Type: Spontaneous
  Country: US (occurrence: US)
  Receive Date: 20160428
  Receipt Date: 20160428
  Transmission Date: 20160815
  Serious: No
  Sender: FDA-Public Use
  Company Number: US-SUN PHARMACEUTICAL INDUSTRIES LTD-2015US-102861

PATIENT
  Sex: Female

DRUGS (1)
  1. LORATADINE. [Suspect]
     Active Substance: LORATADINE
     Indication: HYPERSENSITIVITY
     Dosage: UNK UNK, PRN
     Route: 065
     Dates: start: 20150802

REACTIONS (4)
  - Hypersensitivity [Unknown]
  - Swelling face [Unknown]
  - Burning sensation [Unknown]
  - Rash [Unknown]

NARRATIVE: CASE EVENT DATE: 20150802
